FAERS Safety Report 13779822 (Version 1)
Quarter: 2017Q3

REPORT INFORMATION
  Report Type: Spontaneous
  Country: US (occurrence: US)
  Receive Date: 20170723
  Receipt Date: 20170723
  Transmission Date: 20171127
  Serious: Yes (Other)
  Sender: FDA-Public Use
  Company Number: US-AMGEN-USASP2017107589

PATIENT
  Age: 77 Year
  Sex: Male

DRUGS (5)
  1. PONATINIB [Concomitant]
     Active Substance: PONATINIB
     Dosage: UNK
     Dates: start: 20151030, end: 20170602
  2. CYCLOPHOSPHAMIDE. [Concomitant]
     Active Substance: CYCLOPHOSPHAMIDE
     Dosage: UNK
  3. BLINCYTO [Suspect]
     Active Substance: BLINATUMOMAB
     Indication: PHILADELPHIA CHROMOSOME POSITIVE
  4. BLINCYTO [Suspect]
     Active Substance: BLINATUMOMAB
     Indication: ACUTE LYMPHOCYTIC LEUKAEMIA RECURRENT
     Dosage: UNK UNK, UNK
     Route: 065
     Dates: start: 20170309, end: 2017
  5. VINCRISTINE [Suspect]
     Active Substance: VINCRISTINE
     Indication: PRODUCT USED FOR UNKNOWN INDICATION
     Dosage: UNK
     Route: 065

REACTIONS (2)
  - Blast cell count increased [Unknown]
  - Off label use [Unknown]

NARRATIVE: CASE EVENT DATE: 2017
